FAERS Safety Report 8482067-7 (Version None)
Quarter: 2012Q3

REPORT INFORMATION
  Report Type: 
  Country: None (occurrence: None)
  Receive Date: 20120702
  Receipt Date: 20120529
  Transmission Date: 20120928
  Serious: No
  Sender: FDA-Public Use
  Company Number: US-ASTRAZENECA-2012SE26931

PATIENT
  Age: 66 Year
  Sex: Male

DRUGS (4)
  1. SYMBICORT [Suspect]
     Route: 055
  2. RHINOCORT [Suspect]
     Route: 045
  3. ADVAIR DISKUS 100/50 [Concomitant]
  4. NEXIUM [Suspect]
     Route: 048

REACTIONS (1)
  - NASOPHARYNGITIS [None]
